FAERS Safety Report 8509807-2 (Version None)
Quarter: 2012Q2

REPORT INFORMATION
  Report Type: 
  Country: None (occurrence: None)
  Receive Date: 20120405
  Receipt Date: 20090624
  Transmission Date: 20120825
  Serious: Yes (Disabling)
  Sender: FDA-Public Use
  Company Number: PHEH2009US05646

PATIENT
  Age: 51 Year
  Sex: Female
  Weight: 60.8 kg

DRUGS (2)
  1. RECLAST [Suspect]
     Indication: OSTEOPOROSIS
     Dosage: 5 MG PER YEAR, INTRAVENOUS
     Route: 042
     Dates: start: 20071201
  2. ALLEGRA [Concomitant]

REACTIONS (1)
  - BONE PAIN [None]
